FAERS Safety Report 4424009-7 (Version None)
Quarter: 2004Q3

REPORT INFORMATION
  Report Type: 
  Country: None (occurrence: None)
  Receive Date: 20040812
  Receipt Date: 20040803
  Transmission Date: 20050211
  Serious: Yes (Hospitalization)
  Sender: FDA-Public Use
  Company Number: PHRM2004FR02496

PATIENT
  Age: 71 Year
  Sex: Female

DRUGS (6)
  1. VISKEN [Suspect]
     Indication: ESSENTIAL HYPERTENSION
     Dosage: 15 MG, QD
     Route: 048
  2. TRIMETAZIDINE HYDROCHLORIDE [Suspect]
     Indication: ANGINA PECTORIS
     Dosage: 1 DF, TID
     Route: 048
  3. ZOCOR [Suspect]
     Indication: HYPERCHOLESTEROLAEMIA
     Dosage: 10 MG, QD
     Route: 048
  4. ART 50 [Suspect]
     Indication: OSTEOARTHRITIS
     Dosage: 50 MG, QD
     Route: 048
  5. ACETAMINOPHEN [Concomitant]
  6. BROMAZEPAM [Concomitant]

REACTIONS (5)
  - ABDOMINAL PAIN UPPER [None]
  - CHOLESTASIS [None]
  - CONSTIPATION [None]
  - CYTOLYTIC HEPATITIS [None]
  - HAEMATEMESIS [None]
